FAERS Safety Report 9813013 (Version 1)
Quarter: 2014Q1

REPORT INFORMATION
  Report Type: Spontaneous
  Country: IN (occurrence: None)
  Receive Date: 20140108
  Receipt Date: 20140108
  Transmission Date: 20141002
  Serious: Yes (Other)
  Sender: FDA-Public Use
  Company Number: IN-ALKEM-000454

PATIENT
  Age: 22 Year
  Sex: Male

DRUGS (1)
  1. QUETIAPINE [Suspect]
     Indication: DEPRESSION
     Dosage: 100.00-MG-2.00 TIMES PER-1.0DAYS

REACTIONS (2)
  - Dermatitis acneiform [None]
  - Pruritus [None]
